FAERS Safety Report 9102953 (Version 1)
Quarter: 2013Q1

REPORT INFORMATION
  Report Type: Spontaneous
  Country: AU (occurrence: AU)
  Receive Date: 20130218
  Receipt Date: 20130218
  Transmission Date: 20140127
  Serious: Yes (Other)
  Sender: FDA-Public Use
  Company Number: PHHY2013AU013211

PATIENT
  Age: 65 Year
  Sex: Male

DRUGS (7)
  1. METFORMIN [Suspect]
     Indication: TYPE 2 DIABETES MELLITUS
  2. INSULIN [Concomitant]
  3. ATENOLOL [Concomitant]
  4. TRANDOLAPRIL [Concomitant]
  5. FRUSEMIDE [Concomitant]
  6. SPIRONOLACTONE [Concomitant]
  7. WARFARIN [Concomitant]
     Indication: ATRIAL FIBRILLATION

REACTIONS (13)
  - Cardio-respiratory arrest [Recovering/Resolving]
  - Atrioventricular block complete [Recovering/Resolving]
  - Renal failure acute [Recovering/Resolving]
  - Hyperkalaemia [Recovering/Resolving]
  - Hypothermia [Recovering/Resolving]
  - Blood pressure decreased [Recovering/Resolving]
  - Anaemia [Recovering/Resolving]
  - Coagulopathy [Recovering/Resolving]
  - Dyspnoea [Recovering/Resolving]
  - Lethargy [Recovering/Resolving]
  - Melaena [Recovering/Resolving]
  - Lactic acidosis [Recovering/Resolving]
  - Hypoglycaemia [Recovering/Resolving]
